FAERS Safety Report 8849605 (Version 1)
Quarter: 2012Q4

REPORT INFORMATION
  Report Type: Spontaneous
  Country: US (occurrence: None)
  Receive Date: 20121018
  Receipt Date: 20121018
  Transmission Date: 20130627
  Serious: Yes (Hospitalization)
  Sender: FDA-Public Use
  Company Number: None

PATIENT
  Age: 62 Year
  Sex: Male
  Weight: 76.66 kg

DRUGS (2)
  1. KEFZOL [Suspect]
     Indication: BRONCHITIS
     Route: 042
     Dates: start: 20120803, end: 20120809
  2. KEFZOL [Suspect]
     Indication: ENDOCARDITIS
     Route: 042
     Dates: start: 20120803, end: 20120809

REACTIONS (1)
  - Rash generalised [None]
